FAERS Safety Report 14227441 (Version 4)
Quarter: 2019Q4

REPORT INFORMATION
  Report Type: Report from Study
  Country: GB (occurrence: GB)
  Receive Date: 20171127
  Receipt Date: 20191107
  Transmission Date: 20200122
  Serious: Yes (Hospitalization, Other)
  Sender: FDA-Public Use
  Company Number: GB-BRISTOL-MYERS SQUIBB COMPANY-BMS-2017-034756

PATIENT
  Age: 53 Year
  Sex: Female

DRUGS (1)
  1. ABATACEPT [Suspect]
     Active Substance: ABATACEPT
     Indication: RHEUMATOID ARTHRITIS
     Dosage: 125 MG, QWK
     Route: 058
     Dates: start: 20151117

REACTIONS (15)
  - Nasopharyngitis [Unknown]
  - Kidney infection [Unknown]
  - Pain in extremity [Unknown]
  - Feeling abnormal [Unknown]
  - Product storage error [Unknown]
  - Pyrexia [Unknown]
  - Syncope [Unknown]
  - Post-traumatic stress disorder [Unknown]
  - Arthritis [Unknown]
  - Mental disorder [Unknown]
  - Influenza [Unknown]
  - Malaise [Unknown]
  - Cystitis [Unknown]
  - Renal disorder [Unknown]
  - Infection [Unknown]

NARRATIVE: CASE EVENT DATE: 201904
